FAERS Safety Report 8022691-9 (Version None)
Quarter: 2011Q4

REPORT INFORMATION
  Report Type: 
  Country: None (occurrence: None)
  Receive Date: 20111230
  Receipt Date: 20111219
  Transmission Date: 20120403
  Serious: Yes (Death, Hospitalization)
  Sender: FDA-Public Use
  Company Number: B0771814A

PATIENT
  Age: 63 Year
  Sex: Female

DRUGS (5)
  1. ITRACONAZOLE [Suspect]
     Indication: ACUTE MYELOID LEUKAEMIA
     Dosage: INTRAVENOUS
     Route: 042
  2. CYTARABINE [Concomitant]
  3. ITRACONAZOLE [Suspect]
     Indication: ACUTE MYELOID LEUKAEMIA
     Dosage: ORAL
     Route: 048
  4. IDARUBICIN HCL [Concomitant]
  5. CEFTRIAXONE [Concomitant]

REACTIONS (16)
  - ABDOMINAL TENDERNESS [None]
  - HAEMATOCHEZIA [None]
  - ASCITES [None]
  - CAECITIS [None]
  - ABDOMINAL REBOUND TENDERNESS [None]
  - ENTEROCOCCUS TEST POSITIVE [None]
  - FEBRILE NEUTROPENIA [None]
  - SKIN NECROSIS [None]
  - NEUTROPENIC COLITIS [None]
  - SEPTIC SHOCK [None]
  - GENERAL PHYSICAL HEALTH DETERIORATION [None]
  - ZYGOMYCOSIS [None]
  - HAEMORRHAGE [None]
  - SYNCOPE [None]
  - ABDOMINAL PAIN [None]
  - MUCOSAL NECROSIS [None]
